FAERS Safety Report 13328299 (Version 1)
Quarter: 2017Q1

REPORT INFORMATION
  Report Type: Spontaneous
  Country: US (occurrence: US)
  Receive Date: 20170310
  Receipt Date: 20170310
  Transmission Date: 20170428
  Serious: Yes (Hospitalization)
  Sender: FDA-Public Use
  Company Number: None

PATIENT
  Age: 72 Year
  Sex: Male
  Weight: 125 kg

DRUGS (1)
  1. ZOSYN [Suspect]
     Active Substance: PIPERACILLIN SODIUM\TAZOBACTAM SODIUM
     Dosage: 3 TIMES A DAY
     Route: 041
     Dates: start: 20170227, end: 20170304

REACTIONS (2)
  - Eosinophils urine present [None]
  - Acute kidney injury [None]

NARRATIVE: CASE EVENT DATE: 20170304
